FAERS Safety Report 25968807 (Version 1)
Quarter: 2025Q4

REPORT INFORMATION
  Report Type: Spontaneous
  Country: US (occurrence: US)
  Receive Date: 20251028
  Receipt Date: 20251028
  Transmission Date: 20260118
  Serious: No
  Sender: Kenvue
  Company Number: US-KENVUE-20251005746

PATIENT
  Sex: Female

DRUGS (8)
  1. TYLENOL [Suspect]
     Active Substance: ACETAMINOPHEN
     Indication: Headache
     Dosage: UNK
     Route: 065
     Dates: start: 2025
  2. TREPROSTINIL [Concomitant]
     Active Substance: TREPROSTINIL
     Indication: Pulmonary arterial hypertension
     Dosage: 48 MICROGRAM, FOUR TIME A DAY (16 ?G+ 32 ?G)
     Dates: start: 20250910
  3. TREPROSTINIL [Concomitant]
     Active Substance: TREPROSTINIL
     Dosage: UNK
     Dates: start: 2025
  4. TYVASO DPI [Concomitant]
     Active Substance: TREPROSTINIL
     Indication: Pulmonary arterial hypertension
     Dosage: 64 MICROGRAM
  5. TYVASO DPI [Concomitant]
     Active Substance: TREPROSTINIL
     Dosage: 16 MICROGRAM
  6. TYVASO DPI [Concomitant]
     Active Substance: TREPROSTINIL
     Dosage: 32 MICROGRAM
  7. TYVASO DPI [Concomitant]
     Active Substance: TREPROSTINIL
     Dosage: 48 MICROGRAM
     Dates: start: 20251009
  8. ORENCIA [Concomitant]
     Active Substance: ABATACEPT
     Indication: Product used for unknown indication
     Route: 065

REACTIONS (1)
  - Therapeutic product effect incomplete [Unknown]

NARRATIVE: CASE EVENT DATE: 20250101
